FAERS Safety Report 7278174-7 (Version None)
Quarter: 2011Q1

REPORT INFORMATION
  Report Type: 
  Country: None (occurrence: None)
  Receive Date: 20110207
  Receipt Date: 20110128
  Transmission Date: 20110831
  Serious: Yes (Life-Threatening, Hospitalization)
  Sender: FDA-Public Use
  Company Number: B0460135A

PATIENT
  Sex: Male
  Weight: 63 kg

DRUGS (3)
  1. STILNOX [Concomitant]
     Route: 065
  2. KALETRA [Concomitant]
     Indication: HIV INFECTION
     Dosage: 2UNIT TWICE PER DAY
     Route: 048
     Dates: start: 20061227, end: 20070101
  3. KIVEXA [Suspect]
     Indication: HIV INFECTION
     Dosage: 1UNIT PER DAY
     Route: 048
     Dates: start: 20061227, end: 20070101

REACTIONS (8)
  - PANCYTOPENIA [None]
  - PYREXIA [None]
  - DRUG HYPERSENSITIVITY [None]
  - ERYTHEMA [None]
  - PRURITUS [None]
  - EXFOLIATIVE RASH [None]
  - RENAL IMPAIRMENT [None]
  - HEPATIC FUNCTION ABNORMAL [None]
